FAERS Safety Report 8757976 (Version 2)
Quarter: 2013Q1

REPORT INFORMATION
  Report Type: Spontaneous
  Country: BR (occurrence: BR)
  Receive Date: 20120828
  Receipt Date: 20130125
  Transmission Date: 20140127
  Serious: Yes (Other)
  Sender: FDA-Public Use
  Company Number: PHHY2012BR073642

PATIENT
  Sex: Male

DRUGS (8)
  1. DIOVAN AMLO FIX [Suspect]
     Dosage: 1 DF (320 MG VALS AND 5 MG AMLO), UNK
     Route: 048
  2. DIOVAN HCT [Suspect]
     Dosage: 1 DF (160 MG VALS AND 12.5 MG HCTZ), UNK
     Route: 048
  3. METFORMIN\VILDAGLIPTIN [Suspect]
     Dosage: 1 DF (850 MG METF AND 50 MG VILD), UNK
     Route: 048
  4. DIGEPLUS [Concomitant]
     Indication: DYSPEPSIA
     Dosage: 1 DF (AFTER LUNCH), UNK
     Route: 048
  5. SOMALGIN [Concomitant]
     Indication: BLOOD TRIGLYCERIDES INCREASED
     Dosage: 1 DF, DAILY
     Route: 048
  6. RUSOVAS [Concomitant]
     Indication: BLOOD CHOLESTEROL INCREASED
     Dosage: 1 DF, DAILY
     Route: 048
  7. RIVOTRIL [Concomitant]
     Indication: ANXIETY
     Dosage: 1 DF, DAILY
     Route: 048
  8. GLAUCOTRAT [Concomitant]
     Indication: INTRAOCULAR PRESSURE INCREASED
     Dosage: 2 GTT, DAILY

REACTIONS (6)
  - Diabetes mellitus [Recovered/Resolved]
  - Carotid artery thrombosis [Not Recovered/Not Resolved]
  - Depression [Recovering/Resolving]
  - Feeling abnormal [Unknown]
  - Malaise [Recovered/Resolved]
  - Pain [Recovered/Resolved]
